FAERS Safety Report 9329427 (Version 1)
Quarter: 2013Q2

REPORT INFORMATION
  Report Type: Report from Study
  Country: US (occurrence: US)
  Receive Date: 20130604
  Receipt Date: 20130604
  Transmission Date: 20140414
  Serious: Yes (Other)
  Sender: FDA-Public Use
  Company Number: US-BAYER-2013-065519

PATIENT
  Age: 47 Year
  Sex: Female

DRUGS (4)
  1. BETASERON [Suspect]
     Indication: MULTIPLE SCLEROSIS
     Dosage: 2 MIU, QOD
     Route: 058
     Dates: start: 20130523
  2. ALEVE TABLET [Suspect]
     Dosage: UNK
  3. ALEVE TABLET [Concomitant]
     Indication: MULTIPLE SCLEROSIS
     Dosage: ADDITIONAL ALEVE
  4. ALEVE TABLET [Concomitant]
     Indication: PROPHYLAXIS

REACTIONS (4)
  - Multiple sclerosis [Not Recovered/Not Resolved]
  - Hypoaesthesia [Not Recovered/Not Resolved]
  - Visual impairment [Not Recovered/Not Resolved]
  - Drug ineffective [None]
